FAERS Safety Report 4919797-7 (Version None)
Quarter: 2006Q1

REPORT INFORMATION
  Report Type: 
  Country: None (occurrence: None)
  Receive Date: 20060217
  Receipt Date: 20060207
  Transmission Date: 20060701
  Serious: Yes (Hospitalization, Other)
  Sender: FDA-Public Use
  Company Number: 2006019317

PATIENT
  Age: 88 Year
  Sex: Female
  Weight: 73.9363 kg

DRUGS (5)
  1. CELEBREX [Suspect]
     Indication: ARTHRALGIA
     Dosage: 2 IN 1 D, ORAL
     Route: 048
  2. TOPROL-XL [Concomitant]
  3. NORVASC [Concomitant]
  4. ASPIRIN [Concomitant]
  5. NITRO PATCH (GLYCERYL TRINITRATE) [Concomitant]

REACTIONS (8)
  - ABASIA [None]
  - ARTHRITIS [None]
  - BODY HEIGHT DECREASED [None]
  - CONDITION AGGRAVATED [None]
  - DRUG INEFFECTIVE [None]
  - FALL [None]
  - JOINT SWELLING [None]
  - OEDEMA PERIPHERAL [None]
